FAERS Safety Report 7735045-7 (Version None)
Quarter: 2011Q3

REPORT INFORMATION
  Report Type: 
  Country: None (occurrence: None)
  Receive Date: 20110907
  Receipt Date: 20110902
  Transmission Date: 20111222
  Serious: Yes (Death)
  Sender: FDA-Public Use
  Company Number: US-SANOFI-AVENTIS-2011SA052243

PATIENT
  Age: 57 Year
  Sex: Female

DRUGS (1)
  1. PLAVIX [Suspect]
     Route: 065
     Dates: start: 20060126, end: 20110812

REACTIONS (1)
  - CARDIAC FAILURE CONGESTIVE [None]
